FAERS Safety Report 20162884 (Version 2)
Quarter: 2021Q4

REPORT INFORMATION
  Report Type: Spontaneous
  Country: US (occurrence: US)
  Receive Date: 20211209
  Receipt Date: 20211216
  Transmission Date: 20220303
  Serious: Yes (Hospitalization)
  Sender: FDA-Public Use
  Company Number: US-BIOVITRUM-2021US11625

PATIENT
  Age: 10 Month
  Sex: Male

DRUGS (4)
  1. SYNAGIS [Suspect]
     Active Substance: PALIVIZUMAB
     Indication: Premature baby
     Route: 030
     Dates: start: 202103
  2. SYNAGIS [Suspect]
     Active Substance: PALIVIZUMAB
     Indication: Dyspnoea
  3. SYNAGIS [Suspect]
     Active Substance: PALIVIZUMAB
     Indication: Congenital anomaly
  4. SYNAGIS [Suspect]
     Active Substance: PALIVIZUMAB
     Indication: Selective eating disorder

REACTIONS (2)
  - Complication associated with device [Unknown]
  - Poor feeding infant [Unknown]

NARRATIVE: CASE EVENT DATE: 20211118
